FAERS Safety Report 22879157 (Version 2)
Quarter: 2023Q4

REPORT INFORMATION
  Report Type: Spontaneous
  Country: FR (occurrence: FR)
  Receive Date: 20230829
  Receipt Date: 20231222
  Transmission Date: 20240110
  Serious: Yes (Other)
  Sender: FDA-Public Use
  Company Number: FR-AMGEN-FRASP2023149561

PATIENT

DRUGS (2)
  1. BEVACIZUMAB [Suspect]
     Active Substance: BEVACIZUMAB
     Indication: Mixed hepatocellular cholangiocarcinoma
     Dosage: 15 MILLIGRAM/KILOGRAM, Q3WK
     Route: 042
  2. ATEZOLIZUMAB [Suspect]
     Active Substance: ATEZOLIZUMAB
     Indication: Mixed hepatocellular cholangiocarcinoma
     Dosage: 1200 MILLIGRAM, Q3WK
     Route: 042

REACTIONS (10)
  - Polymyalgia rheumatica [Unknown]
  - Gastrointestinal haemorrhage [Unknown]
  - Inappropriate antidiuretic hormone secretion [Unknown]
  - Thrombocytopenia [Unknown]
  - Drug effective for unapproved indication [Unknown]
  - Off label use [Unknown]
  - Decreased appetite [Unknown]
  - Asthenia [Unknown]
  - Eczema [Unknown]
  - Proteinuria [Unknown]
